FAERS Safety Report 6812322-5 (Version None)
Quarter: 2010Q3

REPORT INFORMATION
  Report Type: 
  Country: None (occurrence: None)
  Receive Date: 20100701
  Receipt Date: 20100628
  Transmission Date: 20110219
  Serious: Yes (Life-Threatening)
  Sender: FDA-Public Use
  Company Number: US-ASTRAZENECA-2010SE27364

PATIENT
  Age: 43 Year
  Sex: Male
  Weight: 86.2 kg

DRUGS (7)
  1. SYMBICORT [Suspect]
     Indication: ASTHMA
     Dosage: 160/4.5, TWO PUFFS
     Route: 055
     Dates: start: 20100101, end: 20100410
  2. SYMBICORT [Suspect]
     Dosage: 160/4.5, TWO PUFFS
     Route: 055
     Dates: end: 20100429
  3. SYMBICORT [Suspect]
     Dosage: 160/4.5, TWO PUFFS
     Route: 055
     Dates: end: 20100525
  4. SINGULAIR [Concomitant]
     Indication: ASTHMA
     Route: 048
     Dates: start: 20080101
  5. SINGULAIR [Concomitant]
     Indication: RHINITIS ALLERGIC
     Route: 048
     Dates: start: 20080101
  6. ALBUTEROL [Concomitant]
  7. ALBUTEROL [Concomitant]
     Dosage: AS NEEDED

REACTIONS (2)
  - DRUG INEFFECTIVE [None]
  - DYSPNOEA [None]
